FAERS Safety Report 4344922-9 (Version None)
Quarter: 2004Q2

REPORT INFORMATION
  Report Type: 
  Country: None (occurrence: None)
  Receive Date: 20040421
  Receipt Date: 20040421
  Transmission Date: 20050107
  Serious: No
  Sender: FDA-Public Use
  Company Number: None

PATIENT
  Age: 76 Year
  Sex: Female
  Weight: 74.8435 kg

DRUGS (1)
  1. AGGRENOX [Suspect]
     Indication: HYPERTENSION
     Dosage: ONE PILL TO DAYS STOPED

REACTIONS (1)
  - HEADACHE [None]
